FAERS Safety Report 5010109-X (Version None)
Quarter: 2006Q2

REPORT INFORMATION
  Report Type: 
  Country: None (occurrence: None)
  Receive Date: 20060404
  Receipt Date: 20051118
  Transmission Date: 20061013
  Serious: No
  Sender: FDA-Public Use
  Company Number: US200511001958

PATIENT
  Sex: Female
  Weight: 81.6 kg

DRUGS (5)
  1. CYMBALTA [Suspect]
     Indication: DEPRESSION
     Dosage: 30 MG, 3/D
     Dates: start: 20050601
  2. AVANDIA /UNK/ (ROSIGLITAZONE MALEATE) [Concomitant]
  3. GLIPIZIDE [Concomitant]
  4. GLUCOPHAGE [Concomitant]
  5. TRICOR [Concomitant]

REACTIONS (8)
  - BOWEL MOVEMENT IRREGULARITY [None]
  - DIZZINESS [None]
  - EYE SWELLING [None]
  - FALL [None]
  - HYPERHIDROSIS [None]
  - PALLOR [None]
  - SWELLING [None]
  - URINARY TRACT INFECTION [None]
